FAERS Safety Report 25215092 (Version 1)
Quarter: 2025Q2

REPORT INFORMATION
  Report Type: Report from Study
  Country: US (occurrence: US)
  Receive Date: 20250418
  Receipt Date: 20250418
  Transmission Date: 20250716
  Serious: Yes (Other)
  Sender: ABBVIE
  Company Number: US-ABBVIE-6228496

PATIENT
  Sex: Female

DRUGS (1)
  1. RISANKIZUMAB [Suspect]
     Active Substance: RISANKIZUMAB
     Indication: Colitis ulcerative
     Route: 058

REACTIONS (2)
  - Medical procedure [Unknown]
  - Product temperature excursion issue [Unknown]
